FAERS Safety Report 25884466 (Version 1)
Quarter: 2025Q4

REPORT INFORMATION
  Report Type: Spontaneous
  Country: GB (occurrence: GB)
  Receive Date: 20251006
  Receipt Date: 20251006
  Transmission Date: 20260117
  Serious: Yes (Hospitalization, Other)
  Sender: SUNOVION
  Company Number: GB-SMPA-2025SPA012866

PATIENT
  Age: 42 Year
  Sex: Female

DRUGS (4)
  1. LURASIDONE HYDROCHLORIDE [Suspect]
     Active Substance: LURASIDONE HYDROCHLORIDE
     Indication: Schizophrenia
     Dosage: UNK
     Route: 048
  2. OLANZAPINE [Suspect]
     Active Substance: OLANZAPINE
     Indication: Schizophrenia
     Dosage: UNK
  3. RISPERIDONE [Suspect]
     Active Substance: RISPERIDONE
     Indication: Product used for unknown indication
     Dosage: UNK
  4. ARIPIPRAZOLE [Suspect]
     Active Substance: ARIPIPRAZOLE
     Indication: Product used for unknown indication
     Dosage: UNK

REACTIONS (9)
  - Compartment syndrome [Unknown]
  - Seizure [Unknown]
  - Hyponatraemia [Unknown]
  - Rhabdomyolysis [Unknown]
  - Polydipsia psychogenic [Unknown]
  - Myositis [Unknown]
  - Peroneal nerve palsy [Unknown]
  - Liver function test abnormal [Unknown]
  - Blood creatine phosphokinase increased [Unknown]
